FAERS Safety Report 9067181 (Version 1)
Quarter: 2013Q1

REPORT INFORMATION
  Report Type: Report from Study
  Country: US (occurrence: US)
  Receive Date: 20130131
  Receipt Date: 20130131
  Transmission Date: 20140127
  Serious: No
  Sender: FDA-Public Use
  Company Number: US-ABBOTT-12P-163-1001083-00

PATIENT
  Age: 35 Year
  Sex: Female

DRUGS (3)
  1. HUMIRA [Suspect]
     Indication: CROHN^S DISEASE
     Dates: start: 201204
  2. HUMIRA [Suspect]
  3. UNKNOWN MEDICATION (UNABLE TO PROVIDE MEDICATIONS AT THE TIME) [Concomitant]
     Indication: PRODUCT USED FOR UNKNOWN INDICATION

REACTIONS (4)
  - Drug ineffective [Not Recovered/Not Resolved]
  - Kidney infection [Not Recovered/Not Resolved]
  - Cystitis [Not Recovered/Not Resolved]
  - Blood urine [Not Recovered/Not Resolved]
